FAERS Safety Report 9730561 (Version 3)
Quarter: 2014Q1

REPORT INFORMATION
  Report Type: Spontaneous
  Country: JP (occurrence: JP)
  Receive Date: 20131204
  Receipt Date: 20140207
  Transmission Date: 20141002
  Serious: Yes (Life-Threatening)
  Sender: FDA-Public Use
  Company Number: JP-AMGEN-JPNSP2013084924

PATIENT
  Age: 74 Year
  Sex: Male
  Weight: 54.9 kg

DRUGS (10)
  1. ENBREL [Suspect]
     Indication: RHEUMATOID ARTHRITIS
     Dosage: 25 MG, 2X/WEEK
     Route: 058
     Dates: start: 20060112, end: 20101005
  2. ENBREL [Suspect]
     Dosage: 50 MG, WEEKLY
     Route: 058
     Dates: start: 20101109
  3. RHEUMATREX                         /00113802/ [Concomitant]
     Dosage: 8 MG, WEEKLY
     Route: 048
     Dates: start: 20040916
  4. RHEUMATREX                         /00113802/ [Concomitant]
     Dosage: 2 MG, 3X WEEKLY
     Route: 048
     Dates: start: 20050125
  5. PREDONINE                          /00016201/ [Concomitant]
     Dosage: 5 MG, 2X/DAY
     Route: 048
     Dates: start: 20040916
  6. NORVASC [Concomitant]
     Dosage: 2.5 MG, 1X/DAY
     Route: 048
  7. FOLIAMIN [Concomitant]
     Dosage: 5 MG, 1X WEEKLY
     Route: 048
     Dates: start: 20050125
  8. SORELMON [Concomitant]
     Dosage: 37.5 MG, 2X/DAY
     Route: 048
     Dates: start: 20080401, end: 20081217
  9. VOLTAREN                           /00372302/ [Concomitant]
     Dosage: 37.5 MG, 2X/DAY
     Route: 048
     Dates: end: 20080331
  10. TAKEPRON [Concomitant]
     Dosage: 15 MG, 1X/DAY
     Route: 048
     Dates: start: 20121018

REACTIONS (1)
  - Lung neoplasm malignant [Not Recovered/Not Resolved]
